FAERS Safety Report 17112503 (Version 1)
Quarter: 2019Q4

REPORT INFORMATION
  Report Type: Report from Study
  Country: ES (occurrence: ES)
  Receive Date: 20191204
  Receipt Date: 20191204
  Transmission Date: 20200122
  Serious: Yes (Other)
  Sender: FDA-Public Use
  Company Number: ES-MYLANLABS-2019M1118283

PATIENT
  Sex: Female

DRUGS (9)
  1. KETAMINE [Concomitant]
     Active Substance: KETAMINE
     Indication: PRODUCT USED FOR UNKNOWN INDICATION
     Dosage: 30 MG/DAY
     Route: 065
     Dates: start: 2018
  2. TAPENTADOL [Suspect]
     Active Substance: TAPENTADOL
     Indication: BREAKTHROUGH PAIN
     Dosage: 150 MG/12H
  3. TAPENTADOL [Suspect]
     Active Substance: TAPENTADOL
     Dosage: 50 MG/12H
     Route: 065
  4. PECFENT [Suspect]
     Active Substance: FENTANYL CITRATE
     Dosage: 800 MCG/DAY
     Route: 045
     Dates: start: 2018
  5. MORPHINE [Suspect]
     Active Substance: MORPHINE
     Indication: PAIN
     Dosage: 100 MG/DAY
     Route: 065
  6. MORPHINE [Suspect]
     Active Substance: MORPHINE
     Dosage: UNK
     Route: 065
  7. PREGABALIN. [Suspect]
     Active Substance: PREGABALIN
     Indication: PAIN
     Dosage: UNKNOWN
     Route: 065
     Dates: start: 2015
  8. DEXAMETHASONE. [Suspect]
     Active Substance: DEXAMETHASONE
     Indication: PAIN
     Dosage: UNKNOWN
     Route: 065
     Dates: start: 2015
  9. PECFENT [Suspect]
     Active Substance: FENTANYL CITRATE
     Indication: BREAKTHROUGH PAIN
     Dosage: 100 MCG (1-2 RESCUES/DAY)
     Route: 045

REACTIONS (2)
  - Mucosal inflammation [Unknown]
  - Constipation [Unknown]

NARRATIVE: CASE EVENT DATE: 2017
